FAERS Safety Report 10016832 (Version 2)
Quarter: 2014Q2

REPORT INFORMATION
  Report Type: Spontaneous
  Country: DE (occurrence: DE)
  Receive Date: 20140318
  Receipt Date: 20140407
  Transmission Date: 20141212
  Serious: Yes (Other)
  Sender: FDA-Public Use
  Company Number: DE-ROCHE-1365074

PATIENT
  Age: 45 Year
  Sex: Female
  Weight: 49 kg

DRUGS (6)
  1. AVASTIN [Suspect]
     Indication: COLON CANCER METASTATIC
     Route: 042
     Dates: start: 20130313, end: 20130807
  2. AVASTIN [Suspect]
     Indication: PERITONEAL CARCINOMA METASTATIC
     Route: 042
     Dates: start: 20130903, end: 20140306
  3. XELODA [Concomitant]
     Indication: COLON NEOPLASM
     Route: 048
     Dates: start: 20130821, end: 20140109
  4. PANTOPRAZOL [Concomitant]
     Indication: GASTRITIS
     Route: 048
     Dates: start: 20130523
  5. BELOC-ZOK [Concomitant]
     Indication: HYPERTENSION
     Route: 048
     Dates: start: 20140123
  6. LOPERAMIDE [Concomitant]
     Indication: DIARRHOEA
     Route: 048
     Dates: start: 20130402

REACTIONS (1)
  - Urinary tract obstruction [Recovered/Resolved]
